FAERS Safety Report 6825318-4 (Version None)
Quarter: 2010Q3

REPORT INFORMATION
  Report Type: 
  Country: None (occurrence: None)
  Receive Date: 20100708
  Receipt Date: 20070110
  Transmission Date: 20110219
  Serious: No
  Sender: FDA-Public Use
  Company Number: US-PFIZER INC-2007003113

PATIENT
  Sex: Female
  Weight: 63.5 kg

DRUGS (6)
  1. CHANTIX [Suspect]
     Indication: SMOKING CESSATION THERAPY
     Dates: start: 20060101
  2. DRUG, UNSPECIFIED [Concomitant]
  3. ZOCOR [Concomitant]
  4. FOSAMAX [Concomitant]
  5. ALPRAZOLAM [Concomitant]
  6. ZOLOFT [Concomitant]

REACTIONS (3)
  - ABNORMAL DREAMS [None]
  - CONSTIPATION [None]
  - NAUSEA [None]
